FAERS Safety Report 10024279 (Version 4)
Quarter: 2014Q3

REPORT INFORMATION
  Report Type: Report from Study
  Country: JP (occurrence: JP)
  Receive Date: 20140320
  Receipt Date: 20140714
  Transmission Date: 20150326
  Serious: Yes (Death, Life-Threatening)
  Sender: FDA-Public Use
  Company Number: JP-PFIZER INC-2011198028

PATIENT
  Sex: Female
  Weight: 1.9 kg

DRUGS (8)
  1. REVATIO [Suspect]
     Active Substance: SILDENAFIL CITRATE
     Indication: PERSISTENT FOETAL CIRCULATION
     Dosage: 2 MG, DAILY
     Route: 054
     Dates: start: 20091002, end: 20091002
  2. PITRESSIN [Concomitant]
     Active Substance: VASOPRESSIN
     Indication: HYPOTENSION
     Dosage: UNK
     Route: 042
     Dates: start: 20091013
  3. DOMININ [Concomitant]
     Indication: CIRCULATORY COLLAPSE
     Dosage: UNK
     Route: 042
  4. DOBUTREX [Concomitant]
     Active Substance: DOBUTAMINE HYDROCHLORIDE
     Indication: CIRCULATORY COLLAPSE
     Dosage: UNK
     Route: 042
  5. FRESH FROZEN PLASMA [Concomitant]
     Active Substance: HUMAN PLASMA
     Indication: CIRCULATORY COLLAPSE
     Dosage: UNK
     Route: 042
     Dates: start: 20091001, end: 20091001
  6. REVATIO [Suspect]
     Active Substance: SILDENAFIL CITRATE
     Dosage: 0.5 MG, DAILY
     Dates: start: 20091014, end: 20091014
  7. REVATIO [Suspect]
     Active Substance: SILDENAFIL CITRATE
     Dosage: 3 MG, DAILY
     Dates: start: 20091015
  8. FLORAN [Concomitant]
     Indication: PULMONARY HYPERTENSION
     Dosage: UNK
     Route: 042
     Dates: start: 20090921

REACTIONS (2)
  - Pulmonary hypertension [Fatal]
  - Hypotension [Recovered/Resolved]

NARRATIVE: CASE EVENT DATE: 20091002
